FAERS Safety Report 14487393 (Version 1)
Quarter: 2018Q1

REPORT INFORMATION
  Report Type: Spontaneous
  Country: AT (occurrence: AT)
  Receive Date: 20180205
  Receipt Date: 20180205
  Transmission Date: 20180509
  Serious: Yes (Other)
  Sender: FDA-Public Use
  Company Number: AT-ELI_LILLY_AND_COMPANY-AT201801011774

PATIENT
  Age: 25 Year
  Sex: Female

DRUGS (20)
  1. SELINA [Concomitant]
     Active Substance: ETHINYL ESTRADIOL\LEVONORGESTREL
     Dosage: UNK, UNKNOWN (MITE)
     Route: 065
  2. FERRETAB COMP. [Concomitant]
     Dosage: 1 U, DAILY
     Route: 065
     Dates: start: 20150430
  3. NOCTOR [Concomitant]
     Indication: SLEEP DISORDER
     Dosage: 1 U, DAILY (DRAGEES)
     Route: 065
     Dates: start: 20150430, end: 20150504
  4. CYMBALTA [Suspect]
     Active Substance: DULOXETINE HYDROCHLORIDE
     Dosage: 60 MG, DAILY
     Route: 048
     Dates: start: 20150506
  5. TRITTICO [Suspect]
     Active Substance: TRAZODONE HYDROCHLORIDE
     Indication: SLEEP DISORDER
     Dosage: 100 MG, DAILY (RETARD TABLET)
     Route: 065
     Dates: start: 20150501, end: 20150501
  6. QUETIAPIN [Concomitant]
     Active Substance: QUETIAPINE
     Dosage: 2000 MG, DAILY
     Route: 065
     Dates: start: 20150428, end: 20150428
  7. LAMICTAL [Concomitant]
     Active Substance: LAMOTRIGINE
     Dosage: 25 MG, DAILY
     Route: 065
     Dates: start: 201503, end: 201504
  8. CYMBALTA [Suspect]
     Active Substance: DULOXETINE HYDROCHLORIDE
     Indication: DEPRESSIVE SYMPTOM
     Dosage: 60 MG, DAILY
     Route: 048
     Dates: start: 201409, end: 20150428
  9. CYMBALTA [Suspect]
     Active Substance: DULOXETINE HYDROCHLORIDE
     Indication: SPINAL PAIN
     Dosage: UNK, UNKNOWN (DEPRESSIVE SYMPTOMS AND DISSOCIATION OF PAIN)
     Route: 048
     Dates: start: 201502
  10. ZOLDEM [Suspect]
     Active Substance: ZOLPIDEM TARTRATE
     Indication: PERINATAL DEPRESSION
     Dosage: 10 MG, DAILY
     Route: 065
     Dates: start: 20150502, end: 20150505
  11. QUETIAPIN [Concomitant]
     Active Substance: QUETIAPINE
     Dosage: 1000 MG, DAILY
     Route: 065
     Dates: start: 201503, end: 20150427
  12. LAMICTAL [Concomitant]
     Active Substance: LAMOTRIGINE
     Dosage: 50 MG, DAILY
     Route: 065
     Dates: start: 201504, end: 20150427
  13. LAMICTAL [Concomitant]
     Active Substance: LAMOTRIGINE
     Dosage: 1500 MG, DAILY
     Route: 065
     Dates: start: 20150428, end: 20150428
  14. NOCTOR [Concomitant]
     Dosage: 1 U, DAILY (DRAGEES)
     Route: 065
     Dates: start: 20150507
  15. CYMBALTA [Suspect]
     Active Substance: DULOXETINE HYDROCHLORIDE
     Indication: PERINATAL DEPRESSION
     Dosage: 120 MG, DAILY
     Route: 048
     Dates: start: 20150501, end: 20150504
  16. OLEOVIT D3 [Concomitant]
     Active Substance: CHOLECALCIFEROL
     Dosage: 30 MG, DAILY (GTT)
     Route: 065
     Dates: start: 20150507, end: 20150507
  17. OLEOVIT D3 [Concomitant]
     Active Substance: CHOLECALCIFEROL
     Dosage: UNK, WEEKLY (1/W) (GTT)
     Route: 065
  18. TRITTICO [Suspect]
     Active Substance: TRAZODONE HYDROCHLORIDE
     Dosage: 50 MG, DAILY
     Route: 065
     Dates: start: 20150505, end: 20150506
  19. OLEOVIT D3 [Concomitant]
     Active Substance: CHOLECALCIFEROL
     Dosage: 30 MG, DAILY (GTT)
     Route: 065
     Dates: start: 20150430, end: 20150430
  20. FOLSAN [Concomitant]
     Active Substance: FOLIC ACID
     Dosage: 0.5 U, DAILY
     Route: 065
     Dates: start: 20150501

REACTIONS (11)
  - Sleep disorder [Recovered/Resolved]
  - Toxicity to various agents [Unknown]
  - Nightmare [Recovered/Resolved]
  - Increased appetite [Recovered/Resolved]
  - Emotional distress [Recovered/Resolved]
  - Fatigue [Recovered/Resolved]
  - Hypomania [Recovered/Resolved]
  - Speech disorder [Unknown]
  - Suicide attempt [Unknown]
  - Weight decreased [Unknown]
  - Psychomotor hyperactivity [Unknown]

NARRATIVE: CASE EVENT DATE: 20150502
